FAERS Safety Report 6523057-0 (Version None)
Quarter: 2009Q4

REPORT INFORMATION
  Report Type: 
  Country: None (occurrence: None)
  Receive Date: 20091230
  Receipt Date: 20091023
  Transmission Date: 20100525
  Serious: No
  Sender: FDA-Public Use
  Company Number: US-TYCO HEALTHCARE/MALLINCKRODT-T200901956

PATIENT

DRUGS (1)
  1. TUSSICAPS EXTENDED-RELEASE [Suspect]

REACTIONS (1)
  - DRUG EFFECT INCREASED [None]
